FAERS Safety Report 5243827-9 (Version None)
Quarter: 2007Q1

REPORT INFORMATION
  Report Type: 
  Country: None (occurrence: None)
  Receive Date: 20070215
  Receipt Date: 20070131
  Transmission Date: 20070707
  Serious: Yes (Death)
  Sender: FDA-Public Use
  Company Number: 2007000197

PATIENT
  Age: 68 Year
  Sex: Male

DRUGS (2)
  1. ERLOTINIB (TABLET) [Suspect]
     Indication: PANCREATIC CARCINOMA
     Dosage: 100 MG (QD); ORAL
     Route: 048
     Dates: start: 20060818, end: 20070122
  2. GEMCITABINE [Suspect]
     Indication: PANCREATIC CARCINOMA
     Dosage: 1000 MG (DAYS 1, 8, 15) INTRAVENOUS
     Route: 042
     Dates: start: 20060810

REACTIONS (3)
  - ASTHENIA [None]
  - INFLAMMATION [None]
  - LEUKOCYTOSIS [None]
